FAERS Safety Report 5874799-1 (Version None)
Quarter: 2008Q3

REPORT INFORMATION
  Report Type: 
  Country: None (occurrence: None)
  Receive Date: 20080908
  Receipt Date: 20080908
  Transmission Date: 20090109
  Serious: Yes (Death)
  Sender: FDA-Public Use
  Company Number: None

PATIENT
  Sex: Male
  Weight: 54.4316 kg

DRUGS (2)
  1. FENTANYL TRANSDERMAL SYSTEM [Suspect]
     Indication: NEURALGIA
     Dosage: 1 PATCH Q 3 DAYS TD
     Route: 062
     Dates: start: 20061015
  2. FENTANYL TRANSDERMAL SYSTEM [Suspect]
     Indication: NEURALGIA
     Dosage: 1 PATCH Q 3 DAYS TD
     Route: 062
     Dates: start: 20061018

REACTIONS (2)
  - THERAPEUTIC AGENT TOXICITY [None]
  - UNRESPONSIVE TO STIMULI [None]
